FAERS Safety Report 7221417-6 (Version None)
Quarter: 2011Q1

REPORT INFORMATION
  Report Type: 
  Country: None (occurrence: None)
  Receive Date: 20110112
  Receipt Date: 20101228
  Transmission Date: 20110831
  Serious: Yes (Death)
  Sender: FDA-Public Use
  Company Number: IE-PFIZER INC-2007084915

PATIENT
  Age: 61 Year
  Sex: Male

DRUGS (17)
  1. DICLOFENAC SODIUM [Suspect]
     Indication: PROPHYLAXIS
  2. INNOHEP [Suspect]
     Dates: start: 20070622
  3. ASPIRIN [Concomitant]
  4. TARGOCID [Suspect]
     Indication: PROPHYLAXIS
  5. VANCOMYCIN [Suspect]
     Indication: PROPHYLAXIS
     Dosage: BID : EVERYDAY
     Route: 048
  6. VELOSEF CAPSULE [Suspect]
     Indication: PROPHYLAXIS
     Dates: start: 20070625, end: 20070626
  7. VALSARTAN [Concomitant]
  8. METRONIDAZOLE [Concomitant]
  9. BISOPROLOL [Concomitant]
  10. ZYVOX [Suspect]
     Indication: PROPHYLAXIS
  11. PRILOSEC [Suspect]
     Indication: PROPHYLAXIS
     Route: 042
  12. SEPTRIN [Suspect]
     Indication: PROPHYLAXIS
  13. INDAPAMIDE [Concomitant]
  14. FUCIDINE CAP [Concomitant]
  15. ZOTON FASTAB [Suspect]
     Indication: PROPHYLAXIS
     Route: 048
     Dates: start: 20070528, end: 20070709
  16. CLEXANE [Suspect]
     Dosage: 40 MG, 1X/DAY
     Route: 042
  17. ENOXAPARIN SODIUM [Suspect]
     Indication: PROPHYLAXIS

REACTIONS (1)
  - TOXIC EPIDERMAL NECROLYSIS [None]
